FAERS Safety Report 16428311 (Version 1)
Quarter: 2019Q2

REPORT INFORMATION
  Report Type: Spontaneous
  Country: ES (occurrence: ES)
  Receive Date: 20190613
  Receipt Date: 20190613
  Transmission Date: 20190711
  Serious: Yes (Other)
  Sender: FDA-Public Use
  Company Number: ES-ALLERGAN-1924162US

PATIENT
  Sex: Male
  Weight: 85 kg

DRUGS (2)
  1. SILODOSIN - BP [Suspect]
     Active Substance: SILODOSIN
     Indication: BENIGN PROSTATIC HYPERPLASIA
     Dosage: 1 DF, QD
     Route: 048
     Dates: start: 20190416
  2. NAPROXENO SODICO CINFA [Concomitant]
     Indication: BACK PAIN
     Dosage: OCCASIONALLY

REACTIONS (1)
  - Testicular pain [Unknown]

NARRATIVE: CASE EVENT DATE: 20190508
